FAERS Safety Report 9331057 (Version 1)
Quarter: 2013Q2

REPORT INFORMATION
  Report Type: Spontaneous
  Country: IT (occurrence: IT)
  Receive Date: 20130605
  Receipt Date: 20130605
  Transmission Date: 20140414
  Serious: No
  Sender: FDA-Public Use
  Company Number: IT-009507513-1305ITA011889

PATIENT
  Age: 56 Year
  Sex: Female
  Weight: 73 kg

DRUGS (3)
  1. SYCREST [Suspect]
     Indication: MANIA
     Dosage: UNK UNK, QD
     Route: 048
     Dates: start: 20120925, end: 20120929
  2. CARBOLITHIUM [Concomitant]
     Indication: BIPOLAR DISORDER
     Dosage: UNK, QD
     Route: 048
     Dates: start: 20120925
  3. DELORAZEPAM [Concomitant]
     Indication: ANXIETY
     Dosage: UNK, QD
     Route: 048
     Dates: start: 20120925

REACTIONS (4)
  - Asthenia [Recovered/Resolved]
  - Vertigo [Recovered/Resolved]
  - Hypotension [Recovered/Resolved]
  - Syncope [Unknown]
